FAERS Safety Report 13413697 (Version 1)
Quarter: 2017Q2

REPORT INFORMATION
  Report Type: Spontaneous
  Country: US (occurrence: US)
  Receive Date: 20170407
  Receipt Date: 20170407
  Transmission Date: 20170830
  Serious: Yes (Other)
  Sender: FDA-Public Use
  Company Number: None

PATIENT
  Age: 58 Year
  Sex: Male
  Weight: 96 kg

DRUGS (1)
  1. ZEPATIER [Suspect]
     Active Substance: ELBASVIR\GRAZOPREVIR
     Indication: HEPATITIS C
     Route: 048
     Dates: start: 20161230, end: 20170327

REACTIONS (7)
  - Rash pruritic [None]
  - Excoriation [None]
  - Macule [None]
  - Rash generalised [None]
  - Papule [None]
  - Rash erythematous [None]
  - Therapy non-responder [None]

NARRATIVE: CASE EVENT DATE: 20161230
